FAERS Safety Report 21594253 (Version 1)
Quarter: 2022Q4

REPORT INFORMATION
  Report Type: Other
  Country: US (occurrence: None)
  Receive Date: 20221115
  Receipt Date: 20221115
  Transmission Date: 20230113
  Serious: Yes (Other)
  Sender: FDA-Public Use
  Company Number: US-ROCHE-3218361

PATIENT
  Age: 31 Year
  Sex: Female

DRUGS (5)
  1. XELODA [Suspect]
     Active Substance: CAPECITABINE
     Indication: Breast cancer stage IV
     Route: 048
     Dates: start: 2020
  2. XELODA [Suspect]
     Active Substance: CAPECITABINE
     Indication: Metastases to lymph nodes
  3. XELODA [Suspect]
     Active Substance: CAPECITABINE
     Indication: Metastases to lung
  4. TRASTUZUMAB [Concomitant]
     Active Substance: TRASTUZUMAB
     Route: 065
  5. TUCATINIB [Concomitant]
     Active Substance: TUCATINIB

REACTIONS (1)
  - Prinzmetal angina [Recovered/Resolved]
